FAERS Safety Report 18490370 (Version 1)
Quarter: 2020Q4

REPORT INFORMATION
  Report Type: Spontaneous
  Country: CH (occurrence: CH)
  Receive Date: 20201111
  Receipt Date: 20201111
  Transmission Date: 20210114
  Serious: Yes (Other)
  Sender: FDA-Public Use
  Company Number: CH-INCYTE CORPORATION-2020IN009363

PATIENT

DRUGS (1)
  1. JAKAVI [Suspect]
     Active Substance: RUXOLITINIB
     Indication: MYELOFIBROSIS
     Dosage: 25 MG, BID
     Route: 048
     Dates: start: 20200701

REACTIONS (6)
  - Coronary artery stenosis [Unknown]
  - Cardiac disorder [Unknown]
  - Feeling abnormal [Unknown]
  - Erythromelalgia [Unknown]
  - Discomfort [Unknown]
  - Hyperhidrosis [Unknown]
